FAERS Safety Report 4914381-3 (Version None)
Quarter: 2006Q1

REPORT INFORMATION
  Report Type: 
  Country: None (occurrence: None)
  Receive Date: 20060113
  Receipt Date: 20051012
  Transmission Date: 20060701
  Serious: No
  Sender: FDA-Public Use
  Company Number: 2005SP001108

PATIENT
  Age: 70 Year
  Sex: Male

DRUGS (2)
  1. LUNESTA [Suspect]
     Indication: INSOMNIA
     Dosage: 2 MG HS ORAL
     Route: 048
     Dates: start: 20050101, end: 20050101
  2. AMBIEN [Concomitant]

REACTIONS (1)
  - VOMITING [None]
